FAERS Safety Report 8119903-X (Version None)
Quarter: 2012Q1

REPORT INFORMATION
  Report Type: 
  Country: None (occurrence: None)
  Receive Date: 20120207
  Receipt Date: 20120127
  Transmission Date: 20120608
  Serious: Yes (Hospitalization)
  Sender: FDA-Public Use
  Company Number: US-JNJFOC-20110901734

PATIENT
  Sex: Female
  Weight: 72.3 kg

DRUGS (9)
  1. CIPROFLOXACIN [Concomitant]
  2. MIRALAX [Concomitant]
  3. RISPERDAL [Concomitant]
  4. CELEXA [Concomitant]
  5. WELLBUTRIN [Concomitant]
  6. TOPAMAX [Concomitant]
  7. PRILOSEC [Concomitant]
  8. REMICADE [Suspect]
     Indication: INFLAMMATORY BOWEL DISEASE
     Route: 042
     Dates: start: 20070101
  9. PROBIOTICS [Concomitant]

REACTIONS (1)
  - DEPRESSION [None]
